FAERS Safety Report 5473148-0 (Version None)
Quarter: 2007Q3

REPORT INFORMATION
  Report Type: 
  Country: None (occurrence: None)
  Receive Date: 20070927
  Receipt Date: 20070918
  Transmission Date: 20080115
  Serious: Yes (Congenital Anomaly)
  Sender: FDA-Public Use
  Company Number: 020-20785-07091105

PATIENT

DRUGS (1)
  1. THALIDOMIDE [Suspect]
     Dosage: INTRA-UTERINE
     Route: 015

REACTIONS (4)
  - CONGENITAL HAND MALFORMATION [None]
  - DRUG EXPOSURE DURING PREGNANCY [None]
  - LIMB HYPOPLASIA CONGENITAL [None]
  - LIMB REDUCTION DEFECT [None]
